FAERS Safety Report 9240641 (Version 3)
Quarter: 2013Q2

REPORT INFORMATION
  Report Type: Report from Study
  Country: JP (occurrence: JP)
  Receive Date: 20130418
  Receipt Date: 20130529
  Transmission Date: 20140414
  Serious: Yes (Hospitalization)
  Sender: FDA-Public Use
  Company Number: JP-GILEAD-2013-0073527

PATIENT
  Age: 61 Year
  Sex: Female

DRUGS (10)
  1. AMBRISENTAN [Suspect]
     Indication: PULMONARY ARTERIAL HYPERTENSION
     Dosage: 2.5 MG, BID
     Route: 048
     Dates: start: 20110524, end: 20110918
  2. AMBRISENTAN [Suspect]
     Dosage: 2.5 MG, TID
     Route: 048
     Dates: start: 20110919
  3. ADCIRCA [Concomitant]
     Indication: PULMONARY ARTERIAL HYPERTENSION
     Route: 048
     Dates: start: 20110702
  4. REVATIO [Concomitant]
     Indication: PULMONARY ARTERIAL HYPERTENSION
     Route: 048
     Dates: end: 20110701
  5. LUPRAC [Concomitant]
     Route: 048
     Dates: end: 20110701
  6. TAKEPRON [Concomitant]
     Indication: PROPHYLAXIS
     Route: 048
  7. TAKEPRON [Concomitant]
     Route: 048
  8. PREDNISOLONE [Concomitant]
     Route: 048
  9. HOKUNALIN                          /00654902/ [Concomitant]
     Route: 061
  10. BROCIN-CODEINE [Concomitant]
     Indication: PROPHYLAXIS
     Route: 048

REACTIONS (4)
  - Epistaxis [Recovered/Resolved]
  - Anaemia [Not Recovered/Not Resolved]
  - Right ventricular failure [Recovered/Resolved]
  - Liver disorder [Recovered/Resolved]
